FAERS Safety Report 9325550 (Version 1)
Quarter: 2013Q2

REPORT INFORMATION
  Report Type: Spontaneous
  Country: BR (occurrence: BR)
  Receive Date: 20130604
  Receipt Date: 20130604
  Transmission Date: 20140414
  Serious: Yes (Hospitalization)
  Sender: FDA-Public Use
  Company Number: PHHY2013BR055437

PATIENT
  Age: 87 Year
  Sex: Female

DRUGS (2)
  1. TEGRETOL CR [Suspect]
     Indication: TRIGEMINAL NEURALGIA
     Dosage: 0.5 DF, (HALF TABLET DAILY)
     Route: 048
  2. DIOVAN AMLO FIX [Suspect]
     Indication: HYPERTENSION
     Dosage: 1 DF, (ONE TABLET DAILY)
     Route: 048

REACTIONS (14)
  - Helicobacter infection [Not Recovered/Not Resolved]
  - Pain [Not Recovered/Not Resolved]
  - Reflux gastritis [Not Recovered/Not Resolved]
  - Abdominal discomfort [Not Recovered/Not Resolved]
  - Hyperchlorhydria [Not Recovered/Not Resolved]
  - Flatulence [Not Recovered/Not Resolved]
  - Urinary tract infection [Unknown]
  - Nervousness [Recovering/Resolving]
  - Mucosal dryness [Not Recovered/Not Resolved]
  - Feeding disorder [Recovering/Resolving]
  - Dry mouth [Not Recovered/Not Resolved]
  - Feeling hot [Recovered/Resolved]
  - Anxiety [Recovering/Resolving]
  - Weight decreased [Not Recovered/Not Resolved]
